FAERS Safety Report 5033652-6 (Version None)
Quarter: 2006Q2

REPORT INFORMATION
  Report Type: 
  Country: None (occurrence: None)
  Receive Date: 20060623
  Receipt Date: 20060615
  Transmission Date: 20061013
  Serious: Yes (Hospitalization)
  Sender: FDA-Public Use
  Company Number: PHBS2006FI08937

PATIENT
  Age: 20 Year
  Sex: Male

DRUGS (13)
  1. CLOZAPINE [Suspect]
     Indication: PSYCHOTIC DISORDER
     Dosage: UNK, UNK
     Route: 048
     Dates: start: 20060504, end: 20060518
  2. CLOZAPINE [Suspect]
     Dosage: 175 MG/D
     Route: 048
     Dates: start: 20060607
  3. LEVOZIN [Concomitant]
     Indication: PSYCHOTIC DISORDER
     Dosage: 100 MG/D
     Route: 048
  4. ESCITALOPRAM OXALATE [Concomitant]
     Dosage: 20 MG/D
     Route: 048
     Dates: end: 20060522
  5. BUSPAR [Concomitant]
     Dosage: 30 MG/D
     Route: 048
     Dates: end: 20060522
  6. NEXIUM [Concomitant]
     Indication: DYSPEPSIA
     Dosage: 40 MG/D
     Route: 048
     Dates: end: 20060522
  7. ABILIFY [Concomitant]
     Indication: PSYCHOTIC DISORDER
     Dosage: 15 MG/D
     Route: 048
     Dates: end: 20060522
  8. RIVATRIL [Concomitant]
     Dosage: 3 MG/D
     Route: 048
     Dates: start: 20060331
  9. ZYRTEC [Concomitant]
     Route: 048
  10. SINGULAIR [Concomitant]
     Route: 065
  11. PULMICORT [Concomitant]
     Route: 065
  12. NASONEX [Concomitant]
     Route: 065
  13. BRICANYL [Concomitant]
     Route: 065

REACTIONS (14)
  - ATELECTASIS [None]
  - BLOOD CREATININE INCREASED [None]
  - C-REACTIVE PROTEIN INCREASED [None]
  - COLITIS [None]
  - CONDITION AGGRAVATED [None]
  - DEPRESSED LEVEL OF CONSCIOUSNESS [None]
  - DIARRHOEA [None]
  - GASTROENTERITIS [None]
  - HYPERHIDROSIS [None]
  - PALLOR [None]
  - POLYURIA [None]
  - PYREXIA [None]
  - SEROTONIN SYNDROME [None]
  - VOMITING [None]
